FAERS Safety Report 17451886 (Version 3)
Quarter: 2020Q2

REPORT INFORMATION
  Report Type: Spontaneous
  Country: FR (occurrence: FR)
  Receive Date: 20200224
  Receipt Date: 20200507
  Transmission Date: 20200713
  Serious: Yes (Other)
  Sender: FDA-Public Use
  Company Number: FR-ALEXION-A202002151

PATIENT
  Age: 23 Year
  Sex: Female
  Weight: 70 kg

DRUGS (2)
  1. SOLIRIS [Suspect]
     Active Substance: ECULIZUMAB
     Indication: OFF LABEL USE
     Dosage: 1200 MG, Q2W
     Route: 065
  2. SOLIRIS [Suspect]
     Active Substance: ECULIZUMAB
     Indication: THROMBOTIC MICROANGIOPATHY
     Dosage: 900 MG, QW
     Route: 065
     Dates: start: 201812

REACTIONS (2)
  - Off label use [Recovered/Resolved]
  - Metastases to lung [Unknown]

NARRATIVE: CASE EVENT DATE: 20190103
